FAERS Safety Report 21988669 (Version 2)
Quarter: 2025Q1

REPORT INFORMATION
  Report Type: Spontaneous
  Country: MA (occurrence: MA)
  Receive Date: 20230214
  Receipt Date: 20250210
  Transmission Date: 20250409
  Serious: Yes (Other)
  Sender: ALKEM
  Company Number: MA-ALKEM LABORATORIES LIMITED-MA-ALKEM-2022-00768

PATIENT
  Age: 56 Year
  Sex: Female

DRUGS (4)
  1. LINEZOLID [Suspect]
     Active Substance: LINEZOLID
     Indication: Urosepsis
     Dosage: 600 MILLIGRAM, BID (EVERY 12 HOURS)
     Route: 065
  2. DOXYCYCLINE [Concomitant]
     Active Substance: DOXYCYCLINE
     Indication: Urosepsis
     Route: 065
  3. Liposomal Amphotericin- B [Concomitant]
     Indication: Urosepsis
     Route: 065
  4. MEROPENEM [Concomitant]
     Active Substance: MEROPENEM
     Indication: Urosepsis
     Route: 065

REACTIONS (1)
  - Lactic acidosis [Unknown]
